FAERS Safety Report 5176329-9 (Version None)
Quarter: 2006Q4

REPORT INFORMATION
  Report Type: 
  Country: None (occurrence: None)
  Receive Date: 20061215
  Receipt Date: 20060814
  Transmission Date: 20070319
  Serious: Yes (Death)
  Sender: FDA-Public Use
  Company Number: 2006UW16196

PATIENT
  Age: 51 Year
  Sex: Male

DRUGS (4)
  1. SEROQUEL [Suspect]
     Route: 048
     Dates: start: 20050101
  2. PROLIXIN DECANOATE [Concomitant]
     Route: 030
  3. LITHIUM CARBONATE [Concomitant]
  4. SYNTHROID [Concomitant]

REACTIONS (1)
  - DEATH [None]
